FAERS Safety Report 5828010-8 (Version None)
Quarter: 2008Q3

REPORT INFORMATION
  Report Type: 
  Country: None (occurrence: None)
  Receive Date: 20080728
  Receipt Date: 20080716
  Transmission Date: 20090109
  Serious: Yes (Hospitalization)
  Sender: FDA-Public Use
  Company Number: 20085221

PATIENT
  Sex: Male

DRUGS (1)
  1. LIORESAL [Suspect]
     Indication: MUSCLE SPASTICITY
     Dosage: 165-330 MCG, DAILY, INTRATHECAL
     Route: 037

REACTIONS (10)
  - COMA [None]
  - DEVICE CONNECTION ISSUE [None]
  - HYPERTONIA [None]
  - HYPOTONIA [None]
  - INSOMNIA [None]
  - OVERDOSE [None]
  - PHARMACEUTICAL PRODUCT COMPLAINT [None]
  - PRURITUS [None]
  - RESPIRATORY DISORDER [None]
  - THERAPEUTIC PRODUCT INEFFECTIVE [None]
